FAERS Safety Report 15909541 (Version 1)
Quarter: 2019Q1

REPORT INFORMATION
  Report Type: Spontaneous
  Country: US (occurrence: US)
  Receive Date: 20190204
  Receipt Date: 20190204
  Transmission Date: 20190417
  Serious: No
  Sender: FDA-Public Use
  Company Number: US-ABBVIE-18K-163-2258825-00

PATIENT
  Sex: Female

DRUGS (5)
  1. ORENCIA [Concomitant]
     Active Substance: ABATACEPT
     Indication: JUVENILE IDIOPATHIC ARTHRITIS
  2. HUMIRA [Suspect]
     Active Substance: ADALIMUMAB
     Indication: JUVENILE IDIOPATHIC ARTHRITIS
     Route: 058
  3. METHOTREXATE. [Concomitant]
     Active Substance: METHOTREXATE
     Indication: JUVENILE IDIOPATHIC ARTHRITIS
     Dates: start: 2014
  4. SULFA [Suspect]
     Active Substance: UNSPECIFIED INGREDIENT
     Indication: JUVENILE IDIOPATHIC ARTHRITIS
     Route: 065
  5. ENBREL [Suspect]
     Active Substance: ETANERCEPT
     Indication: JUVENILE IDIOPATHIC ARTHRITIS
     Route: 065

REACTIONS (4)
  - Swelling [Unknown]
  - Rash generalised [Unknown]
  - Drug ineffective [Unknown]
  - Nasopharyngitis [Unknown]
